FAERS Safety Report 22354684 (Version 1)
Quarter: 2023Q2

REPORT INFORMATION
  Report Type: Spontaneous
  Country: US (occurrence: US)
  Receive Date: 20230523
  Receipt Date: 20230523
  Transmission Date: 20230721
  Serious: No
  Sender: FDA-Public Use
  Company Number: US-PFIZER INC-202200962354

PATIENT
  Age: 93 Year
  Sex: Female
  Weight: 79.365 kg

DRUGS (3)
  1. IBRANCE [Suspect]
     Active Substance: PALBOCICLIB
     Indication: Breast cancer female
     Dosage: DAILY FOR 7 DAYS AND THEN OFF FOR A WEEK
  2. IBRANCE [Suspect]
     Active Substance: PALBOCICLIB
     Dosage: 75 MG, CYCLIC (TAKE 1 TABLET DAILY 21 DAYS ON 7 DAYS OFF)
     Route: 048
  3. CLOPIDOGREL [Concomitant]
     Active Substance: CLOPIDOGREL BISULFATE
     Dosage: 75 MG, 1X/DAY

REACTIONS (3)
  - Product dose omission issue [Unknown]
  - Off label use [Unknown]
  - Gastrointestinal motility disorder [Unknown]
